FAERS Safety Report 21411956 (Version 1)
Quarter: 2022Q4

REPORT INFORMATION
  Report Type: Spontaneous
  Country: US (occurrence: None)
  Receive Date: 20221005
  Receipt Date: 20221005
  Transmission Date: 20230112
  Serious: Yes (Other)
  Sender: FDA-Public Use
  Company Number: None

PATIENT
  Age: 56 Year
  Sex: Male
  Weight: 66.15 kg

DRUGS (3)
  1. MULTIHANCE [Suspect]
     Active Substance: GADOBENATE DIMEGLUMINE
     Indication: Magnetic resonance cholangiopancreatography
     Dates: start: 20220928
  2. Vit B12 injections [Concomitant]
  3. Vit D gummies [Concomitant]

REACTIONS (11)
  - Dyspnoea [None]
  - Fatigue [None]
  - Headache [None]
  - Bowel movement irregularity [None]
  - Insomnia [None]
  - Abnormal dreams [None]
  - Blood glucose increased [None]
  - Globulins increased [None]
  - Hepatic failure [None]
  - Renal failure [None]
  - Pain in extremity [None]

NARRATIVE: CASE EVENT DATE: 20220928
